FAERS Safety Report 13960459 (Version 1)
Quarter: 2017Q3

REPORT INFORMATION
  Report Type: Spontaneous
  Country: US (occurrence: US)
  Receive Date: 20170912
  Receipt Date: 20170912
  Transmission Date: 20171128
  Serious: No
  Sender: FDA-Public Use
  Company Number: US-ALLERGAN-1731045US

PATIENT
  Age: 47 Year
  Sex: Female

DRUGS (2)
  1. LEXAPRO [Suspect]
     Active Substance: ESCITALOPRAM OXALATE
     Dosage: 1/8 TABLET, THEN INCREASED TO 1/4 TABLET
     Route: 048
  2. LEXAPRO [Suspect]
     Active Substance: ESCITALOPRAM OXALATE
     Indication: GENERALISED ANXIETY DISORDER
     Dosage: 10 MG, QD
     Route: 048

REACTIONS (2)
  - Incorrect dose administered [Unknown]
  - Feeling hot [Unknown]
